FAERS Safety Report 4729956-4 (Version None)
Quarter: 2005Q3

REPORT INFORMATION
  Report Type: 
  Country: None (occurrence: None)
  Receive Date: 20050728
  Receipt Date: 20050721
  Transmission Date: 20060218
  Serious: Yes (Death, Other)
  Sender: FDA-Public Use
  Company Number: 430002L05FRA

PATIENT
  Sex: Female

DRUGS (3)
  1. MITOXANTRONE [Suspect]
     Indication: SECONDARY PROGRESSIVE MULTIPLE SCLEROSIS
  2. ...... [Concomitant]
  3. AZATHIOPRINE [Concomitant]

REACTIONS (4)
  - ACUTE MYELOID LEUKAEMIA [None]
  - ANAEMIA [None]
  - INFECTION [None]
  - THROMBOCYTOPENIA [None]
